FAERS Safety Report 19117019 (Version 4)
Quarter: 2021Q2

REPORT INFORMATION
  Report Type: Report from Study
  Country: US (occurrence: US)
  Receive Date: 20210409
  Receipt Date: 20210528
  Transmission Date: 20210717
  Serious: Yes (Other)
  Sender: FDA-Public Use
  Company Number: US-PFIZER INC-2021369505

PATIENT
  Age: 68 Year
  Sex: Male

DRUGS (4)
  1. XTANDI [Suspect]
     Active Substance: ENZALUTAMIDE
     Indication: PROSTATE CANCER
     Dosage: 160 MG, 1X/DAY (IN MORNING)
     Route: 048
     Dates: start: 201911
  2. TRAZODONE [Interacting]
     Active Substance: TRAZODONE HYDROCHLORIDE
     Dosage: UNK
  3. AMLODIPINE BESILATE [Suspect]
     Active Substance: AMLODIPINE BESYLATE
     Dosage: UNK
  4. XTANDI [Suspect]
     Active Substance: ENZALUTAMIDE
     Dosage: 80 MG, 2X/DAY (2 CAPSULES IN THE MORNING AND 2 AT NIGHT)
     Route: 048
     Dates: start: 201912

REACTIONS (11)
  - Drug interaction [Unknown]
  - Diarrhoea [Unknown]
  - Abdominal pain upper [Recovered/Resolved]
  - Coronary artery occlusion [Unknown]
  - Insomnia [Unknown]
  - Heart rate irregular [Unknown]
  - Blood cholesterol abnormal [Unknown]
  - Polyarthritis [Unknown]
  - Cardiac stress test abnormal [Unknown]
  - Abdominal discomfort [Recovered/Resolved]
  - Blood pressure abnormal [Unknown]

NARRATIVE: CASE EVENT DATE: 201911
